FAERS Safety Report 9330585 (Version 1)
Quarter: 2013Q2

REPORT INFORMATION
  Report Type: Report from Study
  Country: BR (occurrence: BR)
  Receive Date: 20130605
  Receipt Date: 20130605
  Transmission Date: 20140414
  Serious: Yes (Other)
  Sender: FDA-Public Use
  Company Number: PHHY2013BR046603

PATIENT
  Sex: Female

DRUGS (5)
  1. DIOVAN [Suspect]
     Indication: HYPERTENSION
     Dosage: 160 MG, QHS (DAILY A NIGHT)
     Route: 048
  2. DIOVAN [Suspect]
     Dosage: 2 DF (80MG) DAILY
  3. DIOVAN [Suspect]
     Dosage: 1 DF (160MG), BID (IN THE MORNING AND NIGHT)
     Route: 048
  4. SELOZOK [Suspect]
     Dosage: 50 MG, QD (IN THE MORNING)
  5. NATRILIX [Suspect]
     Dosage: 1.5 MG ON MONDAYS, WEDNESDAYS AND FRIDAYS

REACTIONS (6)
  - Blood pressure fluctuation [Not Recovered/Not Resolved]
  - Arrhythmia [Not Recovered/Not Resolved]
  - Dizziness [Not Recovered/Not Resolved]
  - Headache [Not Recovered/Not Resolved]
  - Neck pain [Not Recovered/Not Resolved]
  - Fear [Unknown]
